FAERS Safety Report 4818346-1 (Version None)
Quarter: 2005Q4

REPORT INFORMATION
  Report Type: 
  Country: None (occurrence: None)
  Receive Date: 20051031
  Receipt Date: 20051018
  Transmission Date: 20060501
  Serious: Yes (Death)
  Sender: FDA-Public Use
  Company Number: 2005JP001632

PATIENT
  Age: 69 Year
  Sex: Female
  Weight: 40 kg

DRUGS (10)
  1. PROGRAF [Suspect]
     Indication: RHEUMATOID ARTHRITIS
     Dosage: 1.50 MG, UID/QD, ORAL
     Route: 048
     Dates: start: 20050427, end: 20050614
  2. PREDNISOLONE [Suspect]
     Indication: RHEUMATOID ARTHRITIS
     Dosage: 10.00 MG, UID/QD, ORAL
     Route: 048
     Dates: start: 20050414, end: 20050615
  3. RHEUMATREX [Suspect]
     Indication: RHEUMATOID ARTHRITIS
     Dosage: 10.00 MG, WEEKLY, ORAL
     Route: 048
     Dates: start: 20050414, end: 20050615
  4. MOBIC [Concomitant]
  5. LANSOPRAZOLE [Concomitant]
  6. DEPAS (ETIZOLAM) [Concomitant]
  7. ROHYPNOL (FLUNITRAZEPAM) [Concomitant]
  8. RISEDRONATE SODIUM [Concomitant]
  9. ALINAMIN F (FURSULTIAMINE) [Concomitant]
  10. FOLIC ACID [Concomitant]

REACTIONS (5)
  - CARDIO-RESPIRATORY ARREST [None]
  - MYDRIASIS [None]
  - PNEUMOCYSTIS JIROVECI PNEUMONIA [None]
  - PNEUMONIA CYTOMEGALOVIRAL [None]
  - RESPIRATORY FAILURE [None]
